FAERS Safety Report 5626064-5 (Version None)
Quarter: 2008Q1

REPORT INFORMATION
  Report Type: 
  Country: None (occurrence: None)
  Receive Date: 20080211
  Receipt Date: 20080206
  Transmission Date: 20080703
  Serious: Yes (Death)
  Sender: FDA-Public Use
  Company Number: 2008EU000217

PATIENT
  Age: 67 Year
  Sex: Female

DRUGS (7)
  1. TACROLIMUS [Suspect]
     Indication: RENAL TRANSPLANT
  2. MYCOPHENOLATE MOFETIL [Suspect]
     Indication: RENAL TRANSPLANT
  3. FLUOCORTOLONE(FLUOCORTOLONE) [Suspect]
     Indication: RENAL TRANSPLANT
  4. LEVOFLOXACIN [Concomitant]
  5. MEROPENEM (MEROPENEM) [Concomitant]
  6. TOBRAMYCIN [Concomitant]
  7. COTRIM [Concomitant]

REACTIONS (13)
  - BACTERAEMIA [None]
  - CANDIDIASIS [None]
  - COMA [None]
  - COMPLICATIONS OF TRANSPLANTED KIDNEY [None]
  - DECUBITUS ULCER [None]
  - DEHYDRATION [None]
  - ESCHERICHIA URINARY TRACT INFECTION [None]
  - LISTERIA ENCEPHALITIS [None]
  - LISTERIOSIS [None]
  - RENAL IMPAIRMENT [None]
  - UROSEPSIS [None]
  - WEANING FAILURE [None]
  - WOUND INFECTION PSEUDOMONAS [None]
